FAERS Safety Report 14618146 (Version 1)
Quarter: 2018Q1

REPORT INFORMATION
  Report Type: Spontaneous
  Country: US (occurrence: US)
  Receive Date: 20180309
  Receipt Date: 20180309
  Transmission Date: 20180509
  Serious: No
  Sender: FDA-Public Use
  Company Number: US-TARO-2017TAR00844

PATIENT
  Age: 75 Year
  Sex: Female
  Weight: 62.59 kg

DRUGS (4)
  1. NYSTATIN CREAM USP 100,000 UNITS/G [Suspect]
     Active Substance: NYSTATIN
     Indication: ERYTHEMA
  2. NYSTATIN CREAM USP 100,000 UNITS/G [Suspect]
     Active Substance: NYSTATIN
     Indication: DRY SKIN
     Dosage: UNK, 1X/DAY
     Route: 061
     Dates: start: 20170930, end: 20170930
  3. OMEPRAZOLE. [Concomitant]
     Active Substance: OMEPRAZOLE
     Dosage: 20 MG, UNK
  4. LOSARTAN. [Concomitant]
     Active Substance: LOSARTAN
     Dosage: 25 MG, UNK

REACTIONS (3)
  - Swelling face [Recovered/Resolved]
  - Perfume sensitivity [Recovered/Resolved]
  - Headache [Recovered/Resolved]

NARRATIVE: CASE EVENT DATE: 20170930
